FAERS Safety Report 8536837-7 (Version None)
Quarter: 2012Q3

REPORT INFORMATION
  Report Type: 
  Country: None (occurrence: None)
  Receive Date: 20120725
  Receipt Date: 20120716
  Transmission Date: 20120928
  Serious: Yes (Hospitalization)
  Sender: FDA-Public Use
  Company Number: US-ELI_LILLY_AND_COMPANY-US201205004544

PATIENT
  Sex: Male

DRUGS (8)
  1. EFFIENT [Suspect]
     Indication: STENT PLACEMENT
     Dosage: 10 MG, QD
     Dates: start: 20120408
  2. ASPIRIN [Concomitant]
     Dosage: 325 MG, UNK
  3. METOPROLOL SUCCINATE [Concomitant]
  4. SIMVASTATIN [Concomitant]
  5. MULTIVITAMIN [Concomitant]
  6. IRON [Concomitant]
  7. LISINOPRIL [Concomitant]
  8. VITAMIN D [Concomitant]

REACTIONS (2)
  - CORONARY ARTERY THROMBOSIS [None]
  - ANGINA UNSTABLE [None]
